FAERS Safety Report 24783296 (Version 2)
Quarter: 2025Q1

REPORT INFORMATION
  Report Type: Spontaneous
  Country: US (occurrence: US)
  Receive Date: 20241227
  Receipt Date: 20250103
  Transmission Date: 20250408
  Serious: No
  Sender: PFIZER
  Company Number: US-PFIZER INC-202400331547

PATIENT
  Sex: Male

DRUGS (2)
  1. TUCATINIB [Suspect]
     Active Substance: TUCATINIB
  2. PLACEBO [Suspect]
     Active Substance: PLACEBO

REACTIONS (2)
  - Headache [Recovered/Resolved]
  - Wrong product administered [Unknown]

NARRATIVE: CASE EVENT DATE: 20241219
